FAERS Safety Report 6636730-0 (Version None)
Quarter: 2010Q1

REPORT INFORMATION
  Report Type: 
  Country: None (occurrence: None)
  Receive Date: 20100316
  Receipt Date: 20100308
  Transmission Date: 20100710
  Serious: Yes (Hospitalization)
  Sender: FDA-Public Use
  Company Number: B0639962A

PATIENT
  Sex: Female

DRUGS (3)
  1. AUGMENTIN '125' [Suspect]
     Indication: DRUG USE FOR UNKNOWN INDICATION
     Dosage: 1G PER DAY
     Dates: start: 20080313, end: 20080313
  2. DELORAZEPAM [Concomitant]
     Dosage: 14DROP PER DAY
     Route: 048
  3. SEREUPIN [Concomitant]
     Route: 065

REACTIONS (2)
  - DYSPNOEA [None]
  - SKIN REACTION [None]
